FAERS Safety Report 4397024-X (Version None)
Quarter: 2004Q3

REPORT INFORMATION
  Report Type: 
  Country: None (occurrence: None)
  Receive Date: 20040714
  Receipt Date: 20040603
  Transmission Date: 20050211
  Serious: Yes (Death)
  Sender: FDA-Public Use
  Company Number: PHBS2004JP07340

PATIENT
  Age: 53 Year
  Sex: Male
  Weight: 65 kg

DRUGS (6)
  1. VOLTAREN [Suspect]
     Indication: TONSILLITIS
     Dosage: 75 MG/DAY
     Route: 048
     Dates: start: 20010725, end: 20010727
  2. CEFZON [Concomitant]
     Indication: INFECTION PROPHYLAXIS
     Dosage: 300 MG/DAY
     Route: 048
     Dates: start: 20010725, end: 20010727
  3. HOGUSU [Concomitant]
     Indication: ANTIPYRESIS
     Dosage: 3 G/DAY
     Route: 048
     Dates: start: 20010725, end: 20010727
  4. SELBEX [Concomitant]
     Dosage: 1.5 G/DAY
     Route: 048
     Dates: start: 20010725, end: 20010727
  5. VITAMIN B-12 [Concomitant]
     Dosage: 1 MG/DAY
     Route: 042
     Dates: start: 20010725, end: 20010725
  6. VITAMIN C [Concomitant]
     Dosage: 1 MG/DAY
     Route: 042
     Dates: start: 20010725, end: 20010725

REACTIONS (11)
  - APHTHOUS STOMATITIS [None]
  - ARTHRALGIA [None]
  - BACK PAIN [None]
  - BLISTER [None]
  - CONJUNCTIVAL HYPERAEMIA [None]
  - HEADACHE [None]
  - MULTI-ORGAN FAILURE [None]
  - PHARYNGEAL ERYTHEMA [None]
  - PHARYNGOLARYNGEAL PAIN [None]
  - PYREXIA [None]
  - TOXIC EPIDERMAL NECROLYSIS [None]
